FAERS Safety Report 5963072-9 (Version None)
Quarter: 2008Q4

REPORT INFORMATION
  Report Type: 
  Country: None (occurrence: None)
  Receive Date: 20081124
  Receipt Date: 20081111
  Transmission Date: 20090506
  Serious: Yes (Other)
  Sender: FDA-Public Use
  Company Number: US-ROCHE-594639

PATIENT
  Sex: Male
  Weight: 70.8 kg

DRUGS (2)
  1. PEGASYS [Suspect]
     Indication: HEPATITIS C
     Route: 058
     Dates: start: 20081017, end: 20081027
  2. RIBAVIRIN [Suspect]
     Indication: HEPATITIS C
     Dosage: 600 MG AM AND 400 MG PM
     Route: 048
     Dates: start: 20081017, end: 20081027

REACTIONS (1)
  - ABORTION SPONTANEOUS [None]
